FAERS Safety Report 6433913-X (Version None)
Quarter: 2009Q4

REPORT INFORMATION
  Report Type: 
  Country: None (occurrence: None)
  Receive Date: 20091110
  Receipt Date: 20091029
  Transmission Date: 20100525
  Serious: Yes (Hospitalization)
  Sender: FDA-Public Use
  Company Number: JP-AMGEN-US365575

PATIENT
  Sex: Female
  Weight: 46 kg

DRUGS (7)
  1. ENBREL [Suspect]
     Indication: RHEUMATOID ARTHRITIS
     Route: 058
     Dates: start: 20090717, end: 20090904
  2. CALCIUM CARBONATE [Concomitant]
     Route: 048
     Dates: end: 20091009
  3. PREDONINE [Concomitant]
     Route: 048
     Dates: end: 20091009
  4. POLARAMINE [Concomitant]
     Route: 048
     Dates: end: 20091009
  5. LANSOPRAZOLE [Concomitant]
     Route: 048
     Dates: end: 20091009
  6. ROCALTROL [Concomitant]
     Dates: end: 20090914
  7. RENAGEL [Concomitant]
     Route: 048
     Dates: end: 20091009

REACTIONS (1)
  - ERYTHEMA NODOSUM [None]
